FAERS Safety Report 23880808 (Version 1)
Quarter: 2024Q2

REPORT INFORMATION
  Report Type: Spontaneous
  Country: US (occurrence: None)
  Receive Date: 20240520
  Receipt Date: 20240520
  Transmission Date: 20240715
  Serious: Yes (Other)
  Sender: FDA-Public Use
  Company Number: None

PATIENT
  Age: 33 Year

DRUGS (1)
  1. AMBRISENTAN [Suspect]
     Active Substance: AMBRISENTAN

REACTIONS (5)
  - Cough [None]
  - Dyspnoea [None]
  - Wheezing [None]
  - Overweight [None]
  - Blood pressure decreased [None]

NARRATIVE: CASE EVENT DATE: 20240520
